FAERS Safety Report 4816801-1 (Version None)
Quarter: 2005Q4

REPORT INFORMATION
  Report Type: 
  Country: None (occurrence: None)
  Receive Date: 20051031
  Receipt Date: 20051031
  Transmission Date: 20060501
  Serious: Yes (Life-Threatening, Hospitalization)
  Sender: FDA-Public Use
  Company Number: None

PATIENT
  Age: 85 Year
  Sex: Male
  Weight: 53.4 kg

DRUGS (13)
  1. INDERAL [Suspect]
     Indication: ATRIAL FIBRILLATION
     Dosage: 40 MG BID
  2. INDERAL [Suspect]
     Indication: HYPERTENSION
     Dosage: 40 MG BID
  3. INDERAL [Suspect]
     Indication: TREMOR
     Dosage: 40 MG BID
  4. MULTIVITAMINS/MINERALS THERAPEUT CAP/TAB [Concomitant]
  5. ASPIRIN [Concomitant]
  6. OMEPRAZOLE [Concomitant]
  7. SIMVISTATIN [Concomitant]
  8. ISOSORBIDE [Concomitant]
  9. LEVOTHYROXINE SODIUM [Concomitant]
  10. NITROGLYCERIN [Concomitant]
  11. CLOPIDOGREL BISULFATE [Concomitant]
  12. CLOTRIMAZOLE [Concomitant]
  13. ARTIFICIAL TEARS POLYVINYL ALCOHOL [Concomitant]

REACTIONS (2)
  - ATRIOVENTRICULAR BLOCK COMPLETE [None]
  - SYNCOPE [None]
